FAERS Safety Report 10170061 (Version 2)
Quarter: 2014Q3

REPORT INFORMATION
  Report Type: Spontaneous
  Country: US (occurrence: US)
  Receive Date: 20140513
  Receipt Date: 20140718
  Transmission Date: 20150326
  Serious: Yes (Congenital Anomaly, Other)
  Sender: FDA-Public Use
  Company Number: US-PFIZER INC-2014129178

PATIENT
  Sex: Male

DRUGS (6)
  1. ZOLOFT [Suspect]
     Active Substance: SERTRALINE HYDROCHLORIDE
     Indication: ANXIETY
     Dosage: UNK
     Route: 064
     Dates: start: 20070430, end: 20080505
  2. ZOLOFT [Suspect]
     Active Substance: SERTRALINE HYDROCHLORIDE
     Indication: AFFECTIVE DISORDER
  3. PRENATAL VITAMINS [Concomitant]
     Active Substance: VITAMINS
     Dosage: UNK
     Route: 064
  4. HYDROCODONE/ APAP [Concomitant]
     Active Substance: ACETAMINOPHEN\HYDROCODONE
     Dosage: UNK
     Route: 064
     Dates: start: 20080506
  5. ZOLOFT [Suspect]
     Active Substance: SERTRALINE HYDROCHLORIDE
     Indication: DEPRESSION
  6. ZITHROMAX [Concomitant]
     Active Substance: AZITHROMYCIN DIHYDRATE
     Dosage: UNK
     Route: 064
     Dates: start: 2006

REACTIONS (10)
  - Pulmonary artery atresia [Unknown]
  - Maternal exposure during pregnancy [Unknown]
  - Neonatal hypoxia [Unknown]
  - Double outlet right ventricle [Unknown]
  - Patent ductus arteriosus [Unknown]
  - Transposition of the great vessels [Unknown]
  - Ventricular septal defect [Unknown]
  - Neonatal respiratory distress syndrome [Unknown]
  - Cardiac malposition [Unknown]
  - Premature baby [Unknown]

NARRATIVE: CASE EVENT DATE: 20080510
